FAERS Safety Report 5958066-3 (Version None)
Quarter: 2008Q4

REPORT INFORMATION
  Report Type: 
  Country: None (occurrence: None)
  Receive Date: 20081119
  Receipt Date: 20081110
  Transmission Date: 20090506
  Serious: Yes (Hospitalization)
  Sender: FDA-Public Use
  Company Number: A0757100A

PATIENT
  Age: 52 Year
  Sex: Male

DRUGS (10)
  1. THORAZINE [Suspect]
     Indication: DRUG USE FOR UNKNOWN INDICATION
  2. PEG-INTRON [Suspect]
     Indication: HEPATITIS C
     Dosage: 150MCG WEEKLY
     Route: 058
     Dates: start: 20080822
  3. RIBAVIRIN [Suspect]
     Indication: HEPATITIS C
     Dosage: 600MG TWICE PER DAY
     Dates: start: 20080822
  4. REMERON [Suspect]
     Indication: DRUG USE FOR UNKNOWN INDICATION
     Dosage: 60MG AT NIGHT
  5. ALPRAZOLAM [Concomitant]
  6. BENZTROPINE MESYLATE [Concomitant]
  7. LASIX [Concomitant]
  8. GUAIFENEX PSE [Concomitant]
  9. POTASSIUM CHLORIDE [Concomitant]
  10. PRILOSEC [Concomitant]

REACTIONS (12)
  - ASTHENIA [None]
  - BACK PAIN [None]
  - COUGH [None]
  - DYSPNOEA [None]
  - EATING DISORDER [None]
  - HYPERSOMNIA [None]
  - HYPERTENSION [None]
  - HYPOKALAEMIA [None]
  - MENTAL STATUS CHANGES [None]
  - PNEUMONIA BACTERIAL [None]
  - SOMNOLENCE [None]
  - SPUTUM DISCOLOURED [None]
